FAERS Safety Report 8515317 (Version 2)
Quarter: 2013Q3

REPORT INFORMATION
  Report Type: Spontaneous
  Country: JP (occurrence: JP)
  Receive Date: 20120417
  Receipt Date: 20130903
  Transmission Date: 20140515
  Serious: Yes (Hospitalization, Disabling)
  Sender: FDA-Public Use
  Company Number: JP-SANOFI-AVENTIS-2012SA014557

PATIENT
  Age: 71 Year
  Sex: Female
  Weight: 55 kg

DRUGS (8)
  1. UNIPHYL [Concomitant]
     Indication: ASTHMA
     Route: 048
     Dates: start: 20110509, end: 20120226
  2. FLUTICASONE PROPIONATE/SALMETEROL XINAFOATE [Concomitant]
     Indication: ASTHMA
     Route: 048
     Dates: start: 20110516
  3. ITAVASTATIN [Concomitant]
     Indication: LIPID METABOLISM DISORDER
     Route: 048
     Dates: start: 20111125
  4. PLAVIX [Suspect]
     Indication: CEREBRAL INFARCTION
     Route: 048
     Dates: start: 20100325, end: 20111111
  5. PRAVASTATIN [Concomitant]
     Indication: LIPID METABOLISM DISORDER
     Dosage: STRENGTH: 5 MG?FROM 04 MARCH 2012, CHANGED TO FEBURIC HYPERURICEMIA.
     Route: 048
     Dates: end: 20111111
  6. ALLOPURINOL [Concomitant]
     Indication: HYPERURICAEMIA
     Route: 048
     Dates: end: 20120304
  7. CARDENALIN [Concomitant]
     Indication: HYPERTENSION
     Route: 048
     Dates: start: 20100311, end: 20111111
  8. MYSLEE [Concomitant]
     Indication: INSOMNIA
     Route: 048
     Dates: start: 20100826

REACTIONS (2)
  - Paralysis [Unknown]
  - Cerebral haemorrhage [Recovered/Resolved with Sequelae]
